FAERS Safety Report 6385917-3 (Version None)
Quarter: 2009Q4

REPORT INFORMATION
  Report Type: 
  Country: None (occurrence: None)
  Receive Date: 20091002
  Receipt Date: 20090210
  Transmission Date: 20100525
  Serious: No
  Sender: FDA-Public Use
  Company Number: US-ASTRAZENECA-2009UW03857

PATIENT
  Age: 76 Year
  Sex: Female
  Weight: 79.4 kg

DRUGS (5)
  1. ARIMIDEX [Suspect]
     Dosage: UNKNOWN
     Route: 048
     Dates: start: 20060209
  2. CALCIUM [Concomitant]
  3. CRANBERRY [Concomitant]
  4. SYNTHROID [Concomitant]
  5. ASPIRIN [Concomitant]

REACTIONS (2)
  - ILL-DEFINED DISORDER [None]
  - OSTEOPOROSIS [None]
